FAERS Safety Report 6859900-5 (Version None)
Quarter: 2010Q3

REPORT INFORMATION
  Report Type: 
  Country: None (occurrence: None)
  Receive Date: 20100720
  Receipt Date: 20100712
  Transmission Date: 20110219
  Serious: Yes (Death, Hospitalization, Other)
  Sender: FDA-Public Use
  Company Number: GB-MPIJNJ-2010-03162

PATIENT

DRUGS (8)
  1. VELCADE [Suspect]
     Indication: MULTIPLE MYELOMA
     Dosage: 2.4 MG, CYCLIC
     Route: 042
     Dates: start: 20100427, end: 20100504
  2. BENDROFLUMETHIAZIDE [Concomitant]
     Indication: HYPERTENSION
     Dosage: 2.5 MG, UNK
     Dates: start: 19990101
  3. ATENOLOL [Concomitant]
     Indication: HYPERTENSION
     Dosage: 50 MG, UNK
     Dates: start: 19990101
  4. NYSTATIN [Concomitant]
     Indication: ANTIFUNGAL PROPHYLAXIS
     Dosage: 1 ML, UNK
     Dates: start: 20100426
  5. ACYCLOVIR [Concomitant]
     Indication: ANTIVIRAL PROPHYLAXIS
     Dosage: 400 MG, UNK
     Dates: start: 20100426
  6. ADCAL D3 [Concomitant]
     Indication: HYPOCALCAEMIA
  7. ZOLEDRONIC ACID [Concomitant]
     Indication: PROPHYLAXIS
     Dosage: 4 MG, UNK
     Route: 042
  8. ALLOPURINOL [Concomitant]
     Dosage: 100 MG, UNK
     Dates: start: 20100426

REACTIONS (4)
  - DRUG INEFFECTIVE [None]
  - GASTROINTESTINAL HAEMORRHAGE [None]
  - LIVER FUNCTION TEST ABNORMAL [None]
  - MULTIPLE MYELOMA [None]
